FAERS Safety Report 17409217 (Version 1)
Quarter: 2020Q1

REPORT INFORMATION
  Report Type: Spontaneous
  Country: US (occurrence: US)
  Receive Date: 20200212
  Receipt Date: 20200212
  Transmission Date: 20200409
  Serious: Yes (Other)
  Sender: FDA-Public Use
  Company Number: US-LEADING PHARMA LLC-US-2020LEALIT00018

PATIENT
  Age: 8 Year
  Sex: Female

DRUGS (10)
  1. CLONAZEPAM. [Suspect]
     Active Substance: CLONAZEPAM
  2. MIDAZOLAM HYDROCHLORIDE. [Suspect]
     Active Substance: MIDAZOLAM HYDROCHLORIDE
  3. PENTOBARBITAL. [Suspect]
     Active Substance: PENTOBARBITAL
  4. FOSPHENYTOIN [Interacting]
     Active Substance: FOSPHENYTOIN
  5. LEVETIRACETAM. [Suspect]
     Active Substance: LEVETIRACETAM
  6. PHENYTOIN. [Interacting]
     Active Substance: PHENYTOIN
  7. PROPOFOL. [Suspect]
     Active Substance: PROPOFOL
  8. VALPROIC ACID. [Suspect]
     Active Substance: VALPROIC ACID
  9. LACOSAMIDE. [Suspect]
     Active Substance: LACOSAMIDE
  10. LORAZEPAM TABLETS USP [Suspect]
     Active Substance: LORAZEPAM

REACTIONS (1)
  - Drug ineffective [Unknown]
